FAERS Safety Report 4807955-1 (Version None)
Quarter: 2005Q4

REPORT INFORMATION
  Report Type: 
  Country: None (occurrence: None)
  Receive Date: 20051024
  Receipt Date: 20051013
  Transmission Date: 20060501
  Serious: Yes (Other)
  Sender: FDA-Public Use
  Company Number: PR-MERCK-0510USA07173

PATIENT
  Sex: Female

DRUGS (1)
  1. VIOXX [Suspect]
     Route: 048
     Dates: start: 19990101, end: 20030101

REACTIONS (5)
  - ARRHYTHMIA [None]
  - HYPERTENSION [None]
  - ISCHAEMIC STROKE [None]
  - PULMONARY EMBOLISM [None]
  - TRANSIENT ISCHAEMIC ATTACK [None]
